FAERS Safety Report 21635291 (Version 1)
Quarter: 2022Q4

REPORT INFORMATION
  Report Type: Spontaneous
  Country: US (occurrence: US)
  Receive Date: 20221123
  Receipt Date: 20221123
  Transmission Date: 20230113
  Serious: Yes (Other)
  Sender: FDA-Public Use
  Company Number: US-AMERICAN REGENT INC-2022003324

PATIENT
  Age: 75 Year
  Sex: Male

DRUGS (10)
  1. OLANZAPINE [Suspect]
     Active Substance: OLANZAPINE
     Indication: Agitation
     Dosage: 2.5 MILLIGRAM
     Route: 065
  2. OLANZAPINE [Suspect]
     Active Substance: OLANZAPINE
     Indication: Psychotic disorder
  3. CLOZAPINE [Suspect]
     Active Substance: CLOZAPINE
     Indication: Hallucination
     Dosage: 12.5 MG
     Route: 065
  4. CLOZAPINE [Suspect]
     Active Substance: CLOZAPINE
     Dosage: GRADUAL UP-TITRATION TO 50 MG DAILY
     Route: 065
  5. CLOZAPINE [Suspect]
     Active Substance: CLOZAPINE
     Dosage: 50 MILLIGRAM, QD
     Route: 065
  6. CLOZAPINE [Suspect]
     Active Substance: CLOZAPINE
     Dosage: 50 MILLIGRAM, BID
     Route: 065
  7. VALPROIC ACID [Suspect]
     Active Substance: VALPROIC ACID
     Indication: Agitation
     Dosage: 500 MILLIGRAM, BID
     Route: 065
  8. LORAZEPAM [Suspect]
     Active Substance: LORAZEPAM
     Indication: Agitation
     Dosage: UNK, PRN
     Route: 065
  9. LORAZEPAM [Suspect]
     Active Substance: LORAZEPAM
     Dosage: UNK, ^RESTRICTED TO LIFE-THREATENING PSYCHIATRIC EMERGENCY ONLY^
     Route: 065
  10. DONEPEZIL [Concomitant]
     Active Substance: DONEPEZIL
     Indication: Dementia with Lewy bodies
     Dosage: 10 MILLIGRAM, QD
     Route: 065

REACTIONS (5)
  - Neuropsychiatric symptoms [Recovered/Resolved]
  - Motor dysfunction [Recovered/Resolved]
  - Condition aggravated [Recovered/Resolved]
  - Drug hypersensitivity [Recovered/Resolved]
  - Product use in unapproved indication [Unknown]
